FAERS Safety Report 19648296 (Version 9)
Quarter: 2022Q2

REPORT INFORMATION
  Report Type: Report from Study
  Country: CA (occurrence: CA)
  Receive Date: 20210802
  Receipt Date: 20220617
  Transmission Date: 20220720
  Serious: Yes (Death, Other)
  Sender: FDA-Public Use
  Company Number: CA-OTSUKA-2021_026374

PATIENT
  Sex: Female

DRUGS (2)
  1. CEDAZURIDINE\DECITABINE [Suspect]
     Active Substance: CEDAZURIDINE\DECITABINE
     Indication: Myelodysplastic syndrome
     Dosage: (35 MG DECITABINE AND 100 MG CEDAZURIDINE), QD (5 DAYS) PER 28 DAYS CYCLE
     Route: 065
     Dates: start: 20210607
  2. CEDAZURIDINE\DECITABINE [Suspect]
     Active Substance: CEDAZURIDINE\DECITABINE
     Dosage: (35 MG DECITABINE AND 100 MG CEDAZURIDINE), QD (4 DAYS) PER 28 DAYS CYCLE
     Route: 065

REACTIONS (13)
  - Leukaemia [Fatal]
  - Blood test abnormal [Unknown]
  - Platelet transfusion [Unknown]
  - Neutropenia [Unknown]
  - Sleep disorder [Unknown]
  - Pollakiuria [Unknown]
  - Renal disorder [Unknown]
  - Biopsy bone marrow [Unknown]
  - General physical health deterioration [Unknown]
  - Eastern Cooperative Oncology Group performance status worsened [Unknown]
  - Fatigue [Unknown]
  - Product use issue [Unknown]
  - Therapy interrupted [Unknown]

NARRATIVE: CASE EVENT DATE: 20210101
